FAERS Safety Report 8767601 (Version 2)
Quarter: 2012Q4

REPORT INFORMATION
  Report Type: 
  Country: KR (occurrence: KR)
  Receive Date: 20120904
  Receipt Date: 20121003
  Transmission Date: 20130627
  Serious: Yes (Death, Other)
  Sender: FDA-Public Use
  Company Number: KR-CELGENEUS-286-21880-12082739

PATIENT
  Age: 69 Year
  Sex: Female

DRUGS (10)
  1. REVLIMID [Suspect]
     Indication: MULTIPLE MYELOMA
     Route: 048
     Dates: start: 20110531, end: 2011
  2. REVLIMID [Suspect]
     Route: 048
     Dates: start: 2011, end: 201206
  3. ASPIRINE [Concomitant]
     Indication: THROMBOEMBOLISM PROPHYLAXIS
     Dosage: 100 Milligram
     Route: 048
     Dates: start: 20110531, end: 20120801
  4. CRAVIT [Concomitant]
     Indication: ANTIBACTERIAL PROPHYLAXIS
     Dosage: 500 Milligram
     Route: 048
     Dates: start: 20110531, end: 20120801
  5. LYRICA [Concomitant]
     Indication: NEUROPATHY PERIPHERAL
     Dosage: 60 Milligram
     Route: 048
     Dates: start: 20100305, end: 20120801
  6. X-PAIN [Concomitant]
     Indication: BACK PAIN
     Dosage: 2 Dosage forms
     Route: 048
     Dates: start: 20110114, end: 20120801
  7. JURNISTA [Concomitant]
     Indication: BACK PAIN
     Dosage: 16 Milligram
     Route: 048
     Dates: start: 20110614, end: 20120801
  8. JURNISTA [Concomitant]
     Indication: NEUROPATHY
  9. PARIET [Concomitant]
     Indication: GASTRITIS
     Dosage: 10 Milligram
     Route: 048
     Dates: start: 20101107, end: 20120801
  10. STILLEN [Concomitant]
     Indication: GASTRITIS
     Dosage: 3 Dosage forms
     Route: 048
     Dates: start: 20100216, end: 20120801

REACTIONS (2)
  - Plasma cell myeloma [Fatal]
  - Pancytopenia [Unknown]
